FAERS Safety Report 23234442 (Version 1)
Quarter: 2023Q4

REPORT INFORMATION
  Report Type: Spontaneous
  Country: AU (occurrence: AU)
  Receive Date: 20231128
  Receipt Date: 20231128
  Transmission Date: 20240110
  Serious: Yes (Hospitalization)
  Sender: FDA-Public Use
  Company Number: AU-TASMAN PHARMA, INC.-2023TSM00190

PATIENT
  Sex: Male

DRUGS (14)
  1. VERSACLOZ [Suspect]
     Active Substance: CLOZAPINE
     Dosage: 25 MG
     Dates: start: 20230801, end: 20230807
  2. VERSACLOZ [Suspect]
     Active Substance: CLOZAPINE
     Dosage: 100 MG
     Dates: start: 20230808, end: 20230821
  3. VERSACLOZ [Suspect]
     Active Substance: CLOZAPINE
     Dosage: 100 MG
     Dates: start: 20230829, end: 20230911
  4. VERSACLOZ [Suspect]
     Active Substance: CLOZAPINE
     Dosage: 200 MG
     Dates: start: 20230912, end: 20230918
  5. VERSACLOZ [Suspect]
     Active Substance: CLOZAPINE
     Dosage: 300 MG
     Dates: start: 20230927, end: 20231002
  6. VERSACLOZ [Suspect]
     Active Substance: CLOZAPINE
     Dosage: 400 MG
     Dates: start: 20231003, end: 20231009
  7. VERSACLOZ [Suspect]
     Active Substance: CLOZAPINE
     Dosage: 500 MG
     Dates: start: 20231010, end: 20231016
  8. VERSACLOZ [Suspect]
     Active Substance: CLOZAPINE
     Dosage: 500 MG
     Dates: start: 20231031, end: 20231106
  9. VERSACLOZ [Suspect]
     Active Substance: CLOZAPINE
     Dosage: 500 MG
     Dates: start: 20231114, end: 20231114
  10. CLOZAPINE [Suspect]
     Active Substance: CLOZAPINE
     Dosage: 100 MG
     Dates: start: 20230822, end: 20230828
  11. CLOZAPINE [Suspect]
     Active Substance: CLOZAPINE
     Dosage: 300 MG
     Dates: start: 20230919, end: 20230926
  12. CLOZAPINE [Suspect]
     Active Substance: CLOZAPINE
     Dosage: 500 MG
     Dates: start: 20231017, end: 20231030
  13. CLOZAPINE [Suspect]
     Active Substance: CLOZAPINE
     Dosage: 500 MG
     Dates: start: 20231107, end: 20231113
  14. CLOZAPINE [Suspect]
     Active Substance: CLOZAPINE
     Dosage: 500 MG
     Dates: start: 20231115

REACTIONS (1)
  - Hospitalisation [Not Recovered/Not Resolved]

NARRATIVE: CASE EVENT DATE: 20230101
